FAERS Safety Report 20339020 (Version 2)
Quarter: 2022Q3

REPORT INFORMATION
  Report Type: Spontaneous
  Country: US (occurrence: US)
  Receive Date: 20220117
  Receipt Date: 20220831
  Transmission Date: 20221027
  Serious: Yes (Other)
  Sender: FDA-Public Use
  Company Number: US-GILEAD-2022-0565390

PATIENT
  Sex: Male
  Weight: 58.957 kg

DRUGS (8)
  1. VIREAD [Suspect]
     Active Substance: TENOFOVIR DISOPROXIL FUMARATE
     Indication: HIV infection
     Dosage: UNK
     Route: 048
     Dates: start: 2012
  2. VIREAD [Suspect]
     Active Substance: TENOFOVIR DISOPROXIL FUMARATE
     Dosage: UNK
     Route: 048
     Dates: start: 201005, end: 201612
  3. EPIVIR [Concomitant]
     Active Substance: LAMIVUDINE
  4. INTELENCE [Concomitant]
     Active Substance: ETRAVIRINE
  5. REYATAZ [Concomitant]
     Active Substance: ATAZANAVIR SULFATE
  6. LAMIVUDINE [Concomitant]
     Active Substance: LAMIVUDINE
  7. ZIDOVUDINE [Concomitant]
     Active Substance: ZIDOVUDINE
  8. PROLIA [Concomitant]
     Active Substance: DENOSUMAB

REACTIONS (10)
  - Chronic kidney disease [Not Recovered/Not Resolved]
  - Osteoporosis [Not Recovered/Not Resolved]
  - Fanconi syndrome acquired [Not Recovered/Not Resolved]
  - Acute kidney injury [Recovered/Resolved]
  - Pain [Not Recovered/Not Resolved]
  - Emotional distress [Not Recovered/Not Resolved]
  - Anxiety [Not Recovered/Not Resolved]
  - Anhedonia [Not Recovered/Not Resolved]
  - Acidosis [Not Recovered/Not Resolved]
  - General physical health deterioration [Not Recovered/Not Resolved]
